FAERS Safety Report 10267895 (Version 2)
Quarter: 2015Q1

REPORT INFORMATION
  Report Type: Spontaneous
  Country: RU (occurrence: RU)
  Receive Date: 20140630
  Receipt Date: 20150119
  Transmission Date: 20150720
  Serious: Yes (Death, Life-Threatening, Hospitalization, Other)
  Sender: FDA-Public Use
  Company Number: RU-MERCK-1406RUS011730

PATIENT
  Age: 56 Year
  Sex: Male
  Weight: 80 kg

DRUGS (4)
  1. PEGINTRON [Suspect]
     Active Substance: PEGINTERFERON ALFA-2B
     Indication: HEPATITIS C
     Dosage: 120 MICROGRAM, QW
     Dates: start: 20140314
  2. PHOSPHOGLIV [Concomitant]
     Dosage: UNK
     Route: 042
  3. VICTRELIS [Suspect]
     Active Substance: BOCEPREVIR
     Indication: HEPATITIS C
     Dosage: 4 CAPSULES 3 TIMES A DAY
     Route: 048
     Dates: start: 20140418
  4. RIBAVIRIN. [Suspect]
     Active Substance: RIBAVIRIN
     Indication: HEPATITIS C
     Dosage: TOTAL DAILY DOSE OF 800 MG, ONCE DAILY
     Route: 048
     Dates: start: 20140314

REACTIONS (6)
  - Subarachnoid haemorrhage [Fatal]
  - Haemorrhage [Fatal]
  - Sepsis [Fatal]
  - General physical health deterioration [Fatal]
  - Pancytopenia [Fatal]
  - Cerebral microhaemorrhage [Fatal]

NARRATIVE: CASE EVENT DATE: 2014
